FAERS Safety Report 6231005-6 (Version None)
Quarter: 2009Q2

REPORT INFORMATION
  Report Type: 
  Country: None (occurrence: None)
  Receive Date: 20090616
  Receipt Date: 20090609
  Transmission Date: 20091009
  Serious: Yes (Death)
  Sender: FDA-Public Use
  Company Number: IE-ROCHE-637227

PATIENT
  Sex: Male

DRUGS (1)
  1. MIRCERA [Suspect]
     Dosage: FREQUENCY REPORTED MONTHLY
     Route: 058
     Dates: start: 20081201

REACTIONS (1)
  - RENAL DISORDER [None]
